FAERS Safety Report 5991462-7 (Version None)
Quarter: 2008Q4

REPORT INFORMATION
  Report Type: 
  Country: None (occurrence: None)
  Receive Date: 20081211
  Receipt Date: 20081126
  Transmission Date: 20090506
  Serious: Yes (Hospitalization, Other)
  Sender: FDA-Public Use
  Company Number: JP-PFIZER INC-2008094402

PATIENT

DRUGS (6)
  1. MIGLITOL TABLET [Suspect]
     Indication: TYPE 2 DIABETES MELLITUS
     Dosage: UNK
     Route: 048
     Dates: start: 20080815, end: 20081006
  2. CALBLOCK [Concomitant]
     Dosage: UNK
     Route: 048
     Dates: start: 20080815, end: 20080928
  3. ALL OTHER THERAPEUTIC PRODUCTS [Concomitant]
     Dosage: UNK
     Route: 048
     Dates: start: 20080116, end: 20080929
  4. ASPIRIN [Concomitant]
     Dosage: UNK
     Route: 048
     Dates: start: 20050801
  5. TICLOPIDINE HYDROCHLORIDE [Concomitant]
     Dosage: UNK
     Route: 048
     Dates: start: 20080822
  6. MUCOSTA [Concomitant]
     Dosage: UNK
     Route: 048
     Dates: start: 20080822

REACTIONS (4)
  - ANOREXIA [None]
  - ASTHENIA [None]
  - LIVER DISORDER [None]
  - MALAISE [None]
